FAERS Safety Report 16738114 (Version 1)
Quarter: 2019Q3

REPORT INFORMATION
  Report Type: Spontaneous
  Country: JP (occurrence: JP)
  Receive Date: 20190824
  Receipt Date: 20190824
  Transmission Date: 20191005
  Serious: Yes (Other)
  Sender: FDA-Public Use
  Company Number: PHHY2012JP040342

PATIENT
  Age: 33 Year
  Sex: Female

DRUGS (6)
  1. UROKINASE [Suspect]
     Active Substance: UROKINASE
     Indication: DEEP VEIN THROMBOSIS
     Dosage: 24000 U/DAY
     Route: 042
  2. OXYTOCIN. [Concomitant]
     Active Substance: OXYTOCIN
     Indication: LABOUR INDUCTION
     Route: 065
  3. ARGATROBAN. [Suspect]
     Active Substance: ARGATROBAN
     Indication: HEPARIN-INDUCED THROMBOCYTOPENIA
     Dosage: 2.5 UG/KG/MIN
     Route: 042
  4. ARGATROBAN. [Suspect]
     Active Substance: ARGATROBAN
     Dosage: 4.5 UG/KG/MIN
     Route: 042
  5. HEPARIN [Suspect]
     Active Substance: HEPARIN SODIUM
     Indication: DEEP VEIN THROMBOSIS
     Dosage: 20000 U/DAY
     Route: 041
  6. FONDAPARINUX [Suspect]
     Active Substance: FONDAPARINUX
     Indication: PROPHYLAXIS
     Dosage: 2.5 MG/DAY
     Route: 058

REACTIONS (3)
  - Maternal exposure timing unspecified [Unknown]
  - Thrombosis [Recovered/Resolved]
  - Heparin-induced thrombocytopenia [Recovered/Resolved]
